FAERS Safety Report 8319199-X (Version None)
Quarter: 2012Q2

REPORT INFORMATION
  Report Type: 
  Country: None (occurrence: None)
  Receive Date: 20120427
  Receipt Date: 20120420
  Transmission Date: 20120825
  Serious: Yes (Hospitalization, Disabling, Other)
  Sender: FDA-Public Use
  Company Number: US-MERCK-1111USA03759

PATIENT
  Age: 60 Year
  Sex: Female
  Weight: 50 kg

DRUGS (7)
  1. SYNTHROID [Concomitant]
     Indication: AUTOIMMUNE THYROIDITIS
     Dosage: TO CURRENT
     Route: 065
     Dates: start: 20000101
  2. ALENDRONATE SODIUM [Suspect]
     Indication: OSTEOPENIA
     Route: 048
     Dates: start: 20090301, end: 20101201
  3. FOSAMAX [Suspect]
     Indication: OSTEOPENIA
     Route: 048
     Dates: start: 20030101
  4. FOSAMAX [Suspect]
     Route: 048
     Dates: start: 20040601, end: 20070601
  5. FOSAMAX [Suspect]
     Route: 048
     Dates: start: 20040701, end: 20041218
  6. ZOCOR [Concomitant]
     Indication: BLOOD CHOLESTEROL DECREASED
     Dosage: TO CURRENT
     Route: 048
     Dates: start: 19900101
  7. FOSAMAX PLUS D [Suspect]
     Indication: OSTEOPENIA
     Route: 048
     Dates: start: 20070701, end: 20101001

REACTIONS (33)
  - ARTHRITIS [None]
  - INTERVERTEBRAL DISC DEGENERATION [None]
  - TONSILLAR DISORDER [None]
  - COUGH [None]
  - FALL [None]
  - FEMUR FRACTURE [None]
  - LOW TURNOVER OSTEOPATHY [None]
  - CARPAL TUNNEL SYNDROME [None]
  - HYPERLIPIDAEMIA [None]
  - OSTEOARTHRITIS [None]
  - PARAESTHESIA [None]
  - APPENDIX DISORDER [None]
  - JOINT RANGE OF MOTION DECREASED [None]
  - MYALGIA [None]
  - LACTOSE INTOLERANCE [None]
  - FIBROMYALGIA [None]
  - TALIPES [None]
  - HAEMANGIOMA [None]
  - BARRETT'S OESOPHAGUS [None]
  - INCREASED TENDENCY TO BRUISE [None]
  - RHEUMATOID ARTHRITIS [None]
  - HYPERKERATOSIS [None]
  - FATIGUE [None]
  - SPINAL OSTEOARTHRITIS [None]
  - MUSCLE SPASMS [None]
  - GASTRITIS [None]
  - FOOT DEFORMITY [None]
  - OSTEOPOROSIS [None]
  - MONARTHRITIS [None]
  - JOINT DISLOCATION [None]
  - IRRITABLE BOWEL SYNDROME [None]
  - OSTEOPENIA [None]
  - HAEMATURIA [None]
